FAERS Safety Report 9548563 (Version 1)
Quarter: 2013Q3

REPORT INFORMATION
  Report Type: Spontaneous
  Country: US (occurrence: US)
  Receive Date: 20130924
  Receipt Date: 20130924
  Transmission Date: 20140515
  Serious: No
  Sender: FDA-Public Use
  Company Number: US-PFIZER INC-2013272338

PATIENT
  Age: 48 Year
  Sex: Female
  Weight: 81.63 kg

DRUGS (6)
  1. CHANTIX [Suspect]
     Indication: SMOKING CESSATION THERAPY
     Dosage: 0.5 MG, DAILY FOR 3 DAYS
     Route: 048
     Dates: start: 20130901, end: 201309
  2. CHANTIX [Suspect]
     Dosage: 0.5 MG, 2X/DAY FOR 4 DAYS
     Route: 048
     Dates: start: 201309, end: 201309
  3. CHANTIX [Suspect]
     Dosage: 1 MG, 2X/DAY
     Route: 048
     Dates: start: 201309, end: 201309
  4. CARVEDILOL [Concomitant]
     Indication: HYPERTENSION
     Dosage: 12.5 MG, 2X/DAY
  5. LOSARTAN [Concomitant]
     Indication: HYPERTENSION
     Dosage: 50 MG, DAILY
  6. PREMARIN [Concomitant]
     Indication: HYSTERECTOMY
     Dosage: UNK

REACTIONS (2)
  - Feeling abnormal [Unknown]
  - Irritability [Unknown]
